FAERS Safety Report 8157710-2 (Version None)
Quarter: 2012Q1

REPORT INFORMATION
  Report Type: 
  Country: None (occurrence: None)
  Receive Date: 20120222
  Receipt Date: 20120217
  Transmission Date: 20120608
  Serious: Yes (Disabling, Other)
  Sender: FDA-Public Use
  Company Number: US-PFIZER INC-2012028685

PATIENT
  Sex: Female
  Weight: 69.8 kg

DRUGS (6)
  1. LYRICA [Suspect]
     Indication: ARTHRITIS
     Dosage: 75 MG, 2X/DAY
     Route: 048
  2. ACETAMINOPHEN [Interacting]
     Indication: PAIN
     Dosage: UNK AS NEEDED
  3. LYRICA [Suspect]
     Indication: FIBROMYALGIA
     Dosage: 75 MG, DAILY
     Route: 048
     Dates: start: 20120101
  4. GABAPENTIN [Suspect]
     Indication: NEURALGIA
     Dosage: THREE TABLETS
  5. WARFARIN SODIUM [Interacting]
     Dosage: UNK
  6. GABAPENTIN [Suspect]
     Indication: MYALGIA
     Dosage: UNK
     Route: 048

REACTIONS (10)
  - BEDRIDDEN [None]
  - COAGULATION TIME PROLONGED [None]
  - PAIN [None]
  - INCORRECT DOSE ADMINISTERED [None]
  - DRUG INTERACTION [None]
  - ACTIVITIES OF DAILY LIVING IMPAIRED [None]
  - PROTHROMBIN TIME PROLONGED [None]
  - EPISTAXIS [None]
  - DRUG INEFFECTIVE [None]
  - LETHARGY [None]
